FAERS Safety Report 14577656 (Version 1)
Quarter: 2018Q1

REPORT INFORMATION
  Report Type: Spontaneous
  Country: GR (occurrence: GR)
  Receive Date: 20180227
  Receipt Date: 20180227
  Transmission Date: 20180509
  Serious: Yes (Death, Other)
  Sender: FDA-Public Use
  Company Number: GR-MYLANLABS-2018M1012609

PATIENT
  Age: 68 Year
  Sex: Male

DRUGS (11)
  1. ILOPROST. [Concomitant]
     Active Substance: ILOPROST
     Indication: PULMONARY EMBOLISM
     Dosage: UNK
     Route: 055
  2. VANCOMYCIN [Concomitant]
     Active Substance: VANCOMYCIN
     Indication: PROPHYLAXIS
     Dosage: 1 G, UNK
  3. LINEZOLID. [Concomitant]
     Active Substance: LINEZOLID
     Indication: SYSTEMIC CANDIDA
     Dosage: 1200 MG, QD/600 MG, 2X/DAY
  4. VORICONAZOLE. [Suspect]
     Active Substance: VORICONAZOLE
     Dosage: 8 MG/KG, QD / 4 MG/KG, 2X/DAY (THEREAFTER)
  5. BOSENTAN. [Concomitant]
     Active Substance: BOSENTAN
     Indication: PULMONARY EMBOLISM
     Dosage: UNK
  6. IMIPENEM [Concomitant]
     Active Substance: IMIPENEM
     Indication: PNEUMONIA
     Dosage: 4 G, QD/1 G, 4X/DAY
  7. AMPHOTERICIN B. [Suspect]
     Active Substance: AMPHOTERICIN B
     Indication: ASPERGILLUS INFECTION
     Dosage: 3 MG/KG, QD
  8. VORICONAZOLE. [Suspect]
     Active Substance: VORICONAZOLE
     Indication: ASPERGILLUS INFECTION
     Dosage: 12 MG/KG, QD/6 MG/KG, 2X/DAY (FOR THE FIRST DAY)
  9. ILOPROST. [Concomitant]
     Active Substance: ILOPROST
     Dosage: UNK
     Route: 042
  10. COLISTIN [Concomitant]
     Active Substance: COLISTIN
     Indication: PNEUMONIA
     Dosage: UNK UNK, QD/UNK, 3X/DAY (3 ? 10^6 U)
  11. CASPOFUNGIN [Concomitant]
     Active Substance: CASPOFUNGIN
     Indication: SYSTEMIC CANDIDA
     Dosage: UNK

REACTIONS (3)
  - Septic shock [Fatal]
  - Multiple organ dysfunction syndrome [Fatal]
  - Drug ineffective [Fatal]
